FAERS Safety Report 16571774 (Version 3)
Quarter: 2019Q3

REPORT INFORMATION
  Report Type: Spontaneous
  Country: US (occurrence: US)
  Receive Date: 20190715
  Receipt Date: 20190822
  Transmission Date: 20191004
  Serious: No
  Sender: FDA-Public Use
  Company Number: US-PFIZER INC-2019296417

PATIENT
  Age: 69 Year
  Sex: Male

DRUGS (1)
  1. GLYSET [Suspect]
     Active Substance: MIGLITOL
     Dosage: 50 MG, 3X/DAY(3 TIMES A DAY WITH MEALS)
     Route: 048

REACTIONS (2)
  - Inappropriate schedule of product administration [Unknown]
  - Off label use [Unknown]
